FAERS Safety Report 5742720-2 (Version None)
Quarter: 2008Q2

REPORT INFORMATION
  Report Type: 
  Country: None (occurrence: None)
  Receive Date: 20080519
  Receipt Date: 20080509
  Transmission Date: 20081010
  Serious: Yes (Hospitalization)
  Sender: FDA-Public Use
  Company Number: B0520016A

PATIENT

DRUGS (2)
  1. ABACAVIR [Suspect]
     Indication: HIV INFECTION
  2. ANTIRETROVIRAL MEDICATIONS [Concomitant]
     Indication: HIV INFECTION

REACTIONS (1)
  - HAEMOLYTIC URAEMIC SYNDROME [None]
